FAERS Safety Report 19269736 (Version 1)
Quarter: 2021Q2

REPORT INFORMATION
  Report Type: Spontaneous
  Country: US (occurrence: US)
  Receive Date: 20210518
  Receipt Date: 20210518
  Transmission Date: 20210717
  Serious: Yes (Hospitalization)
  Sender: FDA-Public Use
  Company Number: None

PATIENT
  Age: 79 Year
  Sex: Female
  Weight: 83.7 kg

DRUGS (1)
  1. CHLOROTHIAZIDE SODIUM FOR INJECTION, USP (0517?1820?01) [Suspect]
     Active Substance: CHLOROTHIAZIDE SODIUM
     Indication: CARDIAC FAILURE CONGESTIVE
     Dosage: ?          OTHER FREQUENCY:ONCE;?
     Route: 041

REACTIONS (4)
  - Blood pressure decreased [None]
  - Dyspnoea [None]
  - Unresponsive to stimuli [None]
  - Chest discomfort [None]

NARRATIVE: CASE EVENT DATE: 20210513
